FAERS Safety Report 4730703-0 (Version None)
Quarter: 2005Q3

REPORT INFORMATION
  Report Type: 
  Country: None (occurrence: None)
  Receive Date: 20050725
  Receipt Date: 20050223
  Transmission Date: 20060218
  Serious: No
  Sender: FDA-Public Use
  Company Number: USA050291701

PATIENT
  Age: 5 Year
  Sex: Male
  Weight: 15 kg

DRUGS (3)
  1. STRATTERA [Suspect]
     Indication: ATTENTION DEFICIT/HYPERACTIVITY DISORDER
     Dosage: 10 MG DAY
     Dates: start: 20050116, end: 20050222
  2. LAMICTAL [Concomitant]
  3. ZOLOFT [Concomitant]

REACTIONS (6)
  - ENURESIS [None]
  - NOCTURIA [None]
  - POLLAKIURIA [None]
  - SOMNOLENCE [None]
  - THIRST [None]
  - URINARY INCONTINENCE [None]
